FAERS Safety Report 8961705 (Version 1)
Quarter: 2012Q4

REPORT INFORMATION
  Report Type: 
  Country: FR (occurrence: FR)
  Receive Date: 20121213
  Receipt Date: 20121213
  Transmission Date: 20130627
  Serious: Yes (Hospitalization)
  Sender: FDA-Public Use
  Company Number: PHHY2012FR110718

PATIENT
  Sex: Male
  Weight: 4 kg

DRUGS (5)
  1. GLIVEC [Suspect]
     Indication: CHRONIC MYELOID LEUKAEMIA
     Dosage: UNK UKN, UNK
     Route: 064
     Dates: start: 201011
  2. GLIVEC [Suspect]
     Dosage: 400 mg, Daily
     Dates: start: 20120813
  3. SPRYCEL [Suspect]
     Dosage: 100 mg, daily
     Route: 064
  4. PEGINTERFERON ALFA-2A [Concomitant]
     Dosage: 67.5 ug, weekly
     Route: 064
  5. PEGINTERFERON ALFA-2A [Concomitant]
     Dosage: 135 ug, weekly

REACTIONS (3)
  - Blood fibrinogen decreased [Unknown]
  - Aspartate aminotransferase increased [Unknown]
  - Alanine aminotransferase increased [Unknown]
